FAERS Safety Report 21338362 (Version 1)
Quarter: 2022Q3

REPORT INFORMATION
  Report Type: Spontaneous
  Country: CN (occurrence: CN)
  Receive Date: 20220915
  Receipt Date: 20220915
  Transmission Date: 20221027
  Serious: Yes (Other)
  Sender: FDA-Public Use
  Company Number: CN-BAYER-2022A125319

PATIENT
  Age: 25 Year
  Sex: Female
  Weight: 50 kg

DRUGS (1)
  1. YAZ [Suspect]
     Active Substance: DROSPIRENONE\ETHINYL ESTRADIOL
     Indication: Menstruation irregular
     Dosage: 1 DF, QD
     Route: 048
     Dates: start: 20220724, end: 202208

REACTIONS (3)
  - Erosive duodenitis [Recovering/Resolving]
  - Abdominal pain [Recovering/Resolving]
  - Off label use [None]

NARRATIVE: CASE EVENT DATE: 20220724
